FAERS Safety Report 23445280 (Version 1)
Quarter: 2024Q1

REPORT INFORMATION
  Report Type: Report from Study
  Country: CA (occurrence: CA)
  Receive Date: 20240126
  Receipt Date: 20240126
  Transmission Date: 20240409
  Serious: Yes (Other)
  Sender: FDA-Public Use
  Company Number: CA-JNJFOC-20231156714

PATIENT
  Age: 14 Year
  Sex: Male

DRUGS (2)
  1. REMICADE [Suspect]
     Active Substance: INFLIXIMAB
     Indication: Colitis
     Route: 041
     Dates: start: 20210422
  2. REMICADE [Suspect]
     Active Substance: INFLIXIMAB
     Route: 041

REACTIONS (5)
  - Haematochezia [Unknown]
  - Frequent bowel movements [Unknown]
  - Diarrhoea [Unknown]
  - Malaise [Unknown]
  - Off label use [Unknown]
